FAERS Safety Report 21477529 (Version 1)
Quarter: 2022Q4

REPORT INFORMATION
  Report Type: Spontaneous
  Country: US (occurrence: None)
  Receive Date: 20221018
  Receipt Date: 20221018
  Transmission Date: 20230113
  Serious: Yes (Death)
  Sender: FDA-Public Use
  Company Number: None

PATIENT
  Age: 89 Year
  Sex: Female

DRUGS (14)
  1. DEFERASIROX [Suspect]
     Active Substance: DEFERASIROX
     Indication: Anaemia
  2. CRANBERRY [Concomitant]
     Active Substance: CRANBERRY
  3. DOCUSATE SODIUM [Concomitant]
  4. GLIPIZIDE [Concomitant]
  5. LISINOPRIL [Concomitant]
  6. MAGNESIUM OXIDE [Concomitant]
  7. METOPROLOL [Concomitant]
  8. MULTIVITAMINS/FLUORIDE [Concomitant]
  9. PRAVASTATIN [Concomitant]
  10. PREGABALIN [Concomitant]
  11. SPIRONOLACTONE [Concomitant]
  12. TUMERIC [Concomitant]
  13. VITAMIN B12 [Concomitant]
  14. VOLTAREN [Concomitant]

REACTIONS (1)
  - Death [None]

NARRATIVE: CASE EVENT DATE: 20221008
